FAERS Safety Report 4922077-7 (Version None)
Quarter: 2006Q1

REPORT INFORMATION
  Report Type: 
  Country: None (occurrence: None)
  Receive Date: 20060224
  Receipt Date: 20060213
  Transmission Date: 20060701
  Serious: Yes (Hospitalization)
  Sender: FDA-Public Use
  Company Number: US-AMGEN-US168682

PATIENT

DRUGS (1)
  1. KEPIVANCE [Suspect]
     Indication: STOMATITIS

REACTIONS (1)
  - CEREBROVASCULAR ACCIDENT [None]
